FAERS Safety Report 14265669 (Version 1)
Quarter: 2017Q4

REPORT INFORMATION
  Report Type: Spontaneous
  Country: GB (occurrence: GB)
  Receive Date: 20171208
  Receipt Date: 20171208
  Transmission Date: 20180321
  Serious: Yes (Death, Hospitalization, Other)
  Sender: FDA-Public Use
  Company Number: GB-BAUSCH-BL-2017-032731

PATIENT
  Age: 66 Year
  Sex: Male
  Weight: 101 kg

DRUGS (3)
  1. HUMIRA [Suspect]
     Active Substance: ADALIMUMAB
     Indication: PSORIATIC ARTHROPATHY
  2. HUMIRA [Suspect]
     Active Substance: ADALIMUMAB
     Indication: PSORIATIC ARTHROPATHY
     Route: 058
  3. DEXAMETHASONE. [Suspect]
     Active Substance: DEXAMETHASONE
     Indication: PROPHYLAXIS
     Route: 065

REACTIONS (16)
  - Bronchopulmonary aspergillosis [Fatal]
  - Lung infiltration [Unknown]
  - Psoriatic arthropathy [Fatal]
  - Pneumocystis jirovecii pneumonia [Fatal]
  - Peripheral swelling [Unknown]
  - Hyperdynamic left ventricle [Unknown]
  - Cardiac failure congestive [Unknown]
  - Electrocardiogram Q waves [Unknown]
  - Immunosuppression [Fatal]
  - Opportunistic infection [Fatal]
  - Renal impairment [Unknown]
  - Malaise [Fatal]
  - Hypertensive heart disease [Fatal]
  - Respiratory failure [Unknown]
  - Vocal cord paralysis [Unknown]
  - Myocardial infarction [Unknown]

NARRATIVE: CASE EVENT DATE: 201510
